FAERS Safety Report 6287904-2 (Version None)
Quarter: 2009Q3

REPORT INFORMATION
  Report Type: 
  Country: None (occurrence: None)
  Receive Date: 20090729
  Receipt Date: 20090721
  Transmission Date: 20100115
  Serious: Yes (Other)
  Sender: FDA-Public Use
  Company Number: CN-JNJFOC-20090707273

PATIENT
  Sex: Female

DRUGS (2)
  1. RISPERDAL [Suspect]
  2. RISPERDAL [Suspect]
     Indication: DRUG EXPOSURE DURING PREGNANCY
     Dosage: 1.0 MG ONCE A DAY GRADUALLY INCREASED TO 1.0 MG TWICE A DAY

REACTIONS (1)
  - TARDIVE DYSKINESIA [None]
